FAERS Safety Report 22309138 (Version 1)
Quarter: 2023Q2

REPORT INFORMATION
  Report Type: Spontaneous
  Country: PT (occurrence: PT)
  Receive Date: 20230511
  Receipt Date: 20230511
  Transmission Date: 20230722
  Serious: Yes (Other)
  Sender: FDA-Public Use
  Company Number: None

PATIENT
  Age: 53 Year
  Sex: Male

DRUGS (12)
  1. ZIRABEV [Suspect]
     Active Substance: BEVACIZUMAB-BVZR
     Indication: Glioblastoma
     Dosage: 10 MG/KG, EVERY 2 WEEKS (D1 + D15 + D29) UNTIL PROGRESSION OR TOXICITY; 1ST INTAKE=90MIN; 2ND INTAKE
     Route: 042
     Dates: start: 20230131, end: 20230131
  2. ZIRABEV [Suspect]
     Active Substance: BEVACIZUMAB-BVZR
     Dosage: 10 MG/KG, EVERY 2 WEEKS (D1 + D15 + D29) UNTIL PROGRESSION OR TOXICITY; 1ST INTAKE=90MIN; 2ND INTAKE
     Route: 042
     Dates: start: 20230214, end: 20230214
  3. ZIRABEV [Suspect]
     Active Substance: BEVACIZUMAB-BVZR
     Dosage: 10 MG/KG, EVERY 2 WEEKS (D1 + D15 + D29) UNTIL PROGRESSION OR TOXICITY; 1ST INTAKE=90MIN; 2ND INTAKE
     Route: 042
     Dates: start: 20230329, end: 20230329
  4. ZIRABEV [Suspect]
     Active Substance: BEVACIZUMAB-BVZR
     Dosage: 10 MG/KG, EVERY 2 WEEKS (D1 + D15 + D29) UNTIL PROGRESSION OR TOXICITY; 1ST INTAKE=90MIN; 2ND INTAKE
     Route: 042
     Dates: start: 20230412, end: 20230412
  5. ZIRABEV [Suspect]
     Active Substance: BEVACIZUMAB-BVZR
     Dosage: 10 MG/KG, EVERY 2 WEEKS (D1 + D15 + D29) UNTIL PROGRESSION OR TOXICITY; 1ST INTAKE=90MIN; 2ND INTAKE
     Route: 042
     Dates: start: 20230426, end: 20230426
  6. ZIRABEV [Suspect]
     Active Substance: BEVACIZUMAB-BVZR
     Dosage: 10 MG/KG, EVERY 2 WEEKS (D1 + D15 + D29) UNTIL PROGRESSION OR TOXICITY; 1ST INTAKE=90MIN; 2ND INTAKE
     Route: 042
     Dates: start: 20230315, end: 20230315
  7. METOCLOPRAMIDE [Concomitant]
     Active Substance: METOCLOPRAMIDE
     Dosage: 10 MG, 3X/DAY (8/8 H; DURING 5 DAYS, 30MIN BEFORE MEALS)
     Route: 048
  8. SODIUM CHLORIDE [Concomitant]
     Active Substance: SODIUM CHLORIDE
     Dosage: UNK
     Route: 042
  9. LOMUSTINE [Concomitant]
     Active Substance: LOMUSTINE
     Indication: Glioblastoma
     Dosage: D1 (90MG/M2 - MAX DOSE= 160MG) EVERY 6 WEEKS; MUST BE TAKEN PREFERABLY AT NIGHT
     Route: 048
     Dates: start: 20230315, end: 20230315
  10. LOMUSTINE [Concomitant]
     Active Substance: LOMUSTINE
     Dosage: D1 (90MG/M2 - MAX DOSE= 160MG) EVERY 6 WEEKS; MUST BE TAKEN PREFERABLY AT NIGHT
     Route: 048
     Dates: start: 20230131, end: 20230131
  11. ONDANSETRON [Concomitant]
     Active Substance: ONDANSETRON
     Dosage: 8MG/4ML; D1
     Route: 042
  12. ONDANSETRON [Concomitant]
     Active Substance: ONDANSETRON
     Dosage: 8 MG, 2X/DAY (12/12 H; DURING 5 DAYS,AS NEEDED)
     Route: 048

REACTIONS (3)
  - Drug hypersensitivity [Recovering/Resolving]
  - Pruritus [Recovering/Resolving]
  - Rash [Recovering/Resolving]

NARRATIVE: CASE EVENT DATE: 20230426
